FAERS Safety Report 5690598-8 (Version None)
Quarter: 2008Q1

REPORT INFORMATION
  Report Type: 
  Country: None (occurrence: None)
  Receive Date: 20080331
  Receipt Date: 20080331
  Transmission Date: 20080703
  Serious: Yes (Other)
  Sender: FDA-Public Use
  Company Number: None

PATIENT
  Age: 10 Year
  Sex: Male
  Weight: 36.2878 kg

DRUGS (2)
  1. SINGULAIR [Suspect]
     Indication: ASTHMA
     Dosage: 1X DAILY PO
     Route: 048
     Dates: start: 20060515, end: 20071215
  2. SINGULAIR [Suspect]
     Indication: MULTIPLE ALLERGIES
     Dosage: 1X DAILY PO
     Route: 048
     Dates: start: 20060515, end: 20071215

REACTIONS (5)
  - ANXIETY [None]
  - DEPRESSION [None]
  - HEADACHE [None]
  - MIGRAINE [None]
  - PAIN IN EXTREMITY [None]
